FAERS Safety Report 15858722 (Version 1)
Quarter: 2019Q1

REPORT INFORMATION
  Report Type: Spontaneous
  Country: US (occurrence: US)
  Receive Date: 20190123
  Receipt Date: 20190123
  Transmission Date: 20190417
  Serious: Yes (Hospitalization, Other)
  Sender: FDA-Public Use
  Company Number: US-PURACAP PHARMACEUTICAL LLC-2019EPC00004

PATIENT
  Sex: Female

DRUGS (1)
  1. STOOL SOFTENER (DOCUSATE) [Suspect]
     Active Substance: DOCUSATE

REACTIONS (1)
  - Breast cancer [Unknown]
